FAERS Safety Report 23929848 (Version 1)
Quarter: 2024Q2

REPORT INFORMATION
  Report Type: Spontaneous
  Country: US (occurrence: US)
  Receive Date: 20240601
  Receipt Date: 20240601
  Transmission Date: 20240716
  Serious: No
  Sender: FDA-Public Use
  Company Number: US-RADIUS HEALTH INC.-2023US006346

PATIENT
  Age: 66 Year
  Sex: Female

DRUGS (3)
  1. TYMLOS [Suspect]
     Active Substance: ABALOPARATIDE
     Indication: Senile osteoporosis
     Dosage: UP TO 7 CLICKS 70 MICROGRAM, QD NOW
     Route: 058
     Dates: start: 20231202
  2. TYMLOS [Suspect]
     Active Substance: ABALOPARATIDE
     Indication: Osteoporotic fracture
     Dosage: 80MCQ QD
     Route: 058
  3. TYMLOS [Suspect]
     Active Substance: ABALOPARATIDE
     Dosage: 60MCG, QD
     Route: 058

REACTIONS (9)
  - Blood pressure decreased [Unknown]
  - Vitamin D decreased [Unknown]
  - C-telopeptide increased [Unknown]
  - Nausea [Unknown]
  - Intentional product misuse [Not Recovered/Not Resolved]
  - Muscle spasms [Unknown]
  - Injection site bruising [Unknown]
  - Headache [Unknown]
  - Fatigue [Not Recovered/Not Resolved]

NARRATIVE: CASE EVENT DATE: 20231202
